FAERS Safety Report 17411815 (Version 1)
Quarter: 2020Q1

REPORT INFORMATION
  Report Type: Spontaneous
  Country: US (occurrence: US)
  Receive Date: 20200213
  Receipt Date: 20200213
  Transmission Date: 20200409
  Serious: No
  Sender: FDA-Public Use
  Company Number: US-009507513-2002USA000756

PATIENT
  Sex: Female

DRUGS (1)
  1. NUVARING [Suspect]
     Active Substance: ETHINYL ESTRADIOL\ETONOGESTREL
     Dosage: RING
     Route: 067

REACTIONS (4)
  - Product quality issue [Unknown]
  - Medical device site discomfort [Unknown]
  - Device expulsion [Unknown]
  - Medical device site inflammation [Unknown]

NARRATIVE: CASE EVENT DATE: 20200203
